FAERS Safety Report 6181293-X (Version None)
Quarter: 2009Q2

REPORT INFORMATION
  Report Type: 
  Country: None (occurrence: None)
  Receive Date: 20090506
  Receipt Date: 20090428
  Transmission Date: 20091009
  Serious: No
  Sender: FDA-Public Use
  Company Number: US-BAYER-200919474NA

PATIENT
  Sex: Female

DRUGS (1)
  1. MAGNEVIST [Suspect]
     Indication: NUCLEAR MAGNETIC RESONANCE IMAGING
     Dosage: POWER INJECTOR @ 2.0 ML/SEC VIA LECT ANTECUBITAL
     Route: 042

REACTIONS (2)
  - PRURITUS [None]
  - URTICARIA [None]
